FAERS Safety Report 15091555 (Version 1)
Quarter: 2018Q2

REPORT INFORMATION
  Report Type: Spontaneous
  Country: US (occurrence: US)
  Receive Date: 20180608
  Receipt Date: 20180608
  Transmission Date: 20180711
  Serious: No
  Sender: FDA-Public Use
  Company Number: None

PATIENT
  Age: 62 Year
  Sex: Female

DRUGS (25)
  1. MACROBID [Concomitant]
     Active Substance: NITROFURANTOIN\NITROFURANTOIN MONOHYDRATE
  2. HIPREX [Concomitant]
     Active Substance: METHENAMINE HIPPURATE
  3. LEVEMIR FLEXTOUCH INSULIN [Concomitant]
  4. PROPRANOLOL [Concomitant]
     Active Substance: PROPRANOLOL HYDROCHLORIDE
  5. MOBIC [Concomitant]
     Active Substance: MELOXICAM
  6. CLOTRIMAZOLE TOP CREAM [Concomitant]
  7. LISINOPRIL. [Concomitant]
     Active Substance: LISINOPRIL
  8. TOVIAZ [Concomitant]
     Active Substance: FESOTERODINE FUMARATE
  9. K-TAB [Concomitant]
     Active Substance: POTASSIUM CHLORIDE
  10. CLONAZEPAM. [Concomitant]
     Active Substance: CLONAZEPAM
  11. YUVAFEM [Concomitant]
     Active Substance: ESTRADIOL HEMIHYDRATE
  12. NOVOLOG FLEXPEN INSULIN [Concomitant]
  13. OMEPRAZOLE. [Concomitant]
     Active Substance: OMEPRAZOLE
  14. BACLOFEN. [Concomitant]
     Active Substance: BACLOFEN
  15. ZYRTEC [Concomitant]
     Active Substance: CETIRIZINE HYDROCHLORIDE
  16. AMPYRA [Suspect]
     Active Substance: DALFAMPRIDINE
     Indication: MULTIPLE SCLEROSIS
     Route: 048
     Dates: start: 201511
  17. LASIX [Concomitant]
     Active Substance: FUROSEMIDE
  18. NYSTATIN ORAL SUSP [Concomitant]
  19. ASTELIN [Concomitant]
     Active Substance: AZELASTINE HYDROCHLORIDE
  20. PRAVASTATIN. [Concomitant]
     Active Substance: PRAVASTATIN
  21. KETOPROFEN TOP GEL [Concomitant]
  22. SUCRALFATE. [Concomitant]
     Active Substance: SUCRALFATE
  23. ZOFRAN [Concomitant]
     Active Substance: ONDANSETRON HYDROCHLORIDE
  24. METFORMIN [Concomitant]
     Active Substance: METFORMIN HYDROCHLORIDE
  25. BUDESONIDE. [Concomitant]
     Active Substance: BUDESONIDE

REACTIONS (2)
  - Urinary tract infection [None]
  - Dysuria [None]

NARRATIVE: CASE EVENT DATE: 20180507
